FAERS Safety Report 8309797-1 (Version None)
Quarter: 2012Q2

REPORT INFORMATION
  Report Type: 
  Country: None (occurrence: None)
  Receive Date: 20120425
  Receipt Date: 20120419
  Transmission Date: 20120825
  Serious: Yes (Death, Life-Threatening)
  Sender: FDA-Public Use
  Company Number: PHHY2011JP109043

PATIENT
  Age: 86 Year
  Sex: Male

DRUGS (16)
  1. GLYBURIDE [Concomitant]
     Dosage: 1.25 MG, UNK
  2. RIVASTIGMINE [Suspect]
     Dosage: 9 MG, ONCE A DAY
     Route: 062
     Dates: start: 20110917, end: 20111028
  3. PLETAL [Concomitant]
  4. GLYBURIDE [Concomitant]
     Dosage: 2.5 MG, UNK
     Dates: start: 20070201
  5. PRORENAL [Concomitant]
  6. DOXAZOSIN MESYLATE [Concomitant]
  7. DIFLUNISAL [Concomitant]
  8. PURSENNID [Concomitant]
  9. RIVASTIGMINE [Suspect]
     Dosage: 18 MG, ONCE A DAY
     Route: 062
     Dates: start: 20111126, end: 20111203
  10. EVIPROSTAT [Concomitant]
  11. ZESTRIL [Concomitant]
  12. RIVASTIGMINE [Suspect]
     Dosage: 13.5 MG, ONCE A DAY
     Route: 062
     Dates: start: 20111029, end: 20111125
  13. VESICARE [Concomitant]
  14. CANDESARTAN CILEXETIL [Concomitant]
  15. CONIEL [Concomitant]
  16. RIVASTIGMINE [Suspect]
     Indication: DEMENTIA ALZHEIMER'S TYPE
     Dosage: 4.5 MG, ONCE A DAY
     Route: 062
     Dates: start: 20110716, end: 20110916

REACTIONS (11)
  - CARDIAC FAILURE CONGESTIVE [None]
  - HEART RATE INCREASED [None]
  - PLEURAL EFFUSION [None]
  - COUGH [None]
  - FAECAL INCONTINENCE [None]
  - GAIT DISTURBANCE [None]
  - BUNDLE BRANCH BLOCK LEFT [None]
  - PULMONARY OEDEMA [None]
  - INSOMNIA [None]
  - CARDIAC FAILURE [None]
  - RALES [None]
